FAERS Safety Report 9322397 (Version 2)
Quarter: 2013Q2

REPORT INFORMATION
  Report Type: Spontaneous
  Country: US (occurrence: US)
  Receive Date: 20130531
  Receipt Date: 20130628
  Transmission Date: 20140414
  Serious: Yes (Death)
  Sender: FDA-Public Use
  Company Number: US-ENDO PHARMACEUTICALS INC.-SPLN20130049

PATIENT
  Age: 8 Year
  Sex: Male
  Weight: 51.95 kg

DRUGS (1)
  1. SUPPRELIN LA [Suspect]
     Indication: PRODUCT USED FOR UNKNOWN INDICATION
     Route: 058
     Dates: start: 20130515

REACTIONS (3)
  - Intestinal perforation [Fatal]
  - Volvulus [Fatal]
  - Acute abdomen [Fatal]
